FAERS Safety Report 6239928-9 (Version None)
Quarter: 2009Q2

REPORT INFORMATION
  Report Type: 
  Country: None (occurrence: None)
  Receive Date: 20090619
  Receipt Date: 20090604
  Transmission Date: 20091009
  Serious: Yes (Other)
  Sender: FDA-Public Use
  Company Number: 8047528

PATIENT
  Sex: Male

DRUGS (1)
  1. CIMZIA [Suspect]
     Indication: CROHN'S DISEASE
     Dosage: SC
     Route: 058

REACTIONS (6)
  - CONTUSION [None]
  - DISEASE PROGRESSION [None]
  - FATIGUE [None]
  - MACULAR DEGENERATION [None]
  - MUSCULAR WEAKNESS [None]
  - WEIGHT INCREASED [None]
